FAERS Safety Report 23735543 (Version 1)
Quarter: 2024Q2

REPORT INFORMATION
  Report Type: Other
  Country: VN (occurrence: None)
  Receive Date: 20240412
  Receipt Date: 20240412
  Transmission Date: 20240716
  Serious: Yes (Other)
  Sender: FDA-Public Use
  Company Number: VN-ROCHE-3543601

PATIENT

DRUGS (5)
  1. TRASTUZUMAB [Suspect]
     Active Substance: TRASTUZUMAB
     Indication: Breast cancer stage III
     Dosage: 4 CYCLES- 21 DAYS CYCLE
     Route: 065
  2. TRASTUZUMAB [Suspect]
     Active Substance: TRASTUZUMAB
     Dosage: 4 CYCLES- 21 DAYS CYCLE
     Route: 065
  3. DOXORUBICIN [Suspect]
     Active Substance: DOXORUBICIN
     Indication: Breast cancer stage III
     Dosage: 4 CYCLES
     Route: 065
  4. CYCLOPHOSPHAMIDE [Suspect]
     Active Substance: CYCLOPHOSPHAMIDE
     Indication: Breast cancer stage III
     Dosage: 4 CYCLES
     Route: 065
  5. PACLITAXEL [Suspect]
     Active Substance: PACLITAXEL
     Indication: Breast cancer stage III
     Dosage: 4 CYCLES
     Route: 042

REACTIONS (13)
  - Agranulocytosis [Unknown]
  - Leukopenia [Unknown]
  - Hepatotoxicity [Unknown]
  - Neutropenia [Unknown]
  - Haemoglobin decreased [Unknown]
  - Thrombocytopenia [Unknown]
  - Vomiting [Unknown]
  - Decreased appetite [Unknown]
  - Stomatitis [Unknown]
  - Alopecia [Unknown]
  - Cardiotoxicity [Unknown]
  - Ejection fraction decreased [Unknown]
  - Neurotoxicity [Unknown]
